FAERS Safety Report 9840048 (Version 1)
Quarter: 2013Q4

REPORT INFORMATION
  Report Type: Spontaneous
  Country: US (occurrence: None)
  Receive Date: 20131206
  Receipt Date: 20131206
  Transmission Date: 20140711
  Serious: Yes (Hospitalization)
  Sender: FDA-Public Use
  Company Number: 369031

PATIENT
  Age: 61 Year
  Sex: Female
  Weight: 127 kg

DRUGS (5)
  1. NOVOLOG MIX 70/30 [Suspect]
     Indication: TYPE 2 DIABETES MELLITUS
     Dosage: WITH SLIDING SCALE
     Route: 058
     Dates: end: 20120220
  2. LYRICA [Concomitant]
  3. AMBIEN [Concomitant]
  4. LEXAPRO [Concomitant]
  5. BENAZEPRIL W/HYDROCHLOROTHIAZIDE [Concomitant]

REACTIONS (1)
  - Hypoglycaemic unconsciousness [None]
